FAERS Safety Report 10150643 (Version 1)
Quarter: 2014Q2

REPORT INFORMATION
  Report Type: Spontaneous
  Country: US (occurrence: US)
  Receive Date: 20140502
  Receipt Date: 20140502
  Transmission Date: 20141212
  Serious: No
  Sender: FDA-Public Use
  Company Number: US-TEVA-478855USA

PATIENT
  Sex: Female
  Weight: 73.55 kg

DRUGS (2)
  1. PROAIR HFA [Suspect]
     Indication: SEASONAL ALLERGY
     Dates: start: 201311
  2. ALLEGRA [Concomitant]
     Indication: SEASONAL ALLERGY

REACTIONS (1)
  - Eye disorder [Unknown]
